FAERS Safety Report 5009016-8 (Version None)
Quarter: 2006Q2

REPORT INFORMATION
  Report Type: 
  Country: None (occurrence: None)
  Receive Date: 20060519
  Receipt Date: 20060512
  Transmission Date: 20061013
  Serious: Yes (Death)
  Sender: FDA-Public Use
  Company Number: SUS1-2006-00500

PATIENT
  Age: 65 Year
  Sex: Female

DRUGS (10)
  1. ADDERALL 15 [Suspect]
     Dosage: POSSIBLY 15 MG DAILY
     Dates: end: 20060501
  2. LIPITOR [Concomitant]
  3. ADVAIR DISKUS 100/50 [Concomitant]
  4. XOPENEX [Concomitant]
  5. ALBUTEROL (SALBUTAMOL SULFATE) [Concomitant]
  6. MORPHINE SULFATE [Concomitant]
  7. AVINZA [Concomitant]
  8. OTHER UNSPECIFIED PAIN MEDICATIONS [Concomitant]
  9. UNSPECIFIED SSRI'S [Concomitant]
  10. UNSPECIFIED BLOOD PRESSURE MEDICATIONS [Concomitant]

REACTIONS (2)
  - CHRONIC OBSTRUCTIVE PULMONARY DISEASE [None]
  - TERMINAL STATE [None]
